FAERS Safety Report 21726106 (Version 1)
Quarter: 2022Q4

REPORT INFORMATION
  Report Type: Spontaneous
  Country: US (occurrence: US)
  Receive Date: 20221214
  Receipt Date: 20221214
  Transmission Date: 20230112
  Serious: Yes (Other)
  Sender: FDA-Public Use
  Company Number: US-ALVOGEN-2022-ALVOGEN-120422

PATIENT

DRUGS (2)
  1. FENTANYL [Suspect]
     Active Substance: FENTANYL
     Indication: Hypoxic ischaemic encephalopathy neonatal
     Dosage: MCG/HR
     Dates: start: 20150701, end: 20170630
  2. DEXMEDETOMIDINE [Suspect]
     Active Substance: DEXMEDETOMIDINE
     Indication: Hypoxic ischaemic encephalopathy neonatal
     Dates: start: 20170701, end: 20200630

REACTIONS (3)
  - Apnoea [Unknown]
  - Bradycardia [Unknown]
  - Hypotension [Unknown]
